FAERS Safety Report 7927620-1 (Version None)
Quarter: 2011Q4

REPORT INFORMATION
  Report Type: 
  Country: None (occurrence: None)
  Receive Date: 20111118
  Receipt Date: 20111108
  Transmission Date: 20120403
  Serious: Yes (Death)
  Sender: FDA-Public Use
  Company Number: CA-EISAI INC-E7389-01635-SOL-CA

PATIENT
  Sex: Female
  Weight: 70 kg

DRUGS (1)
  1. HALAVEN [Suspect]
     Route: 042
     Dates: start: 20110629, end: 20110706

REACTIONS (2)
  - PYREXIA [None]
  - SEPSIS [None]
